FAERS Safety Report 25772566 (Version 1)
Quarter: 2025Q3

REPORT INFORMATION
  Report Type: Spontaneous
  Country: JP (occurrence: JP)
  Receive Date: 20250908
  Receipt Date: 20250908
  Transmission Date: 20251020
  Serious: Yes (Other)
  Sender: MERCK SHARP & DOHME LLC
  Company Number: JP-009507513-2317403

PATIENT
  Age: 3 Decade
  Sex: Male

DRUGS (2)
  1. KEYTRUDA [Suspect]
     Active Substance: PEMBROLIZUMAB
     Indication: Metastatic renal cell carcinoma
     Route: 065
  2. LENVIMA [Suspect]
     Active Substance: LENVATINIB
     Indication: Metastatic renal cell carcinoma
     Route: 065

REACTIONS (11)
  - Renal impairment [Unknown]
  - Pyrexia [Unknown]
  - Malaise [Unknown]
  - Stomatitis [Unknown]
  - Thyroiditis [Unknown]
  - Epistaxis [Unknown]
  - Fatigue [Unknown]
  - Hyperhidrosis [Unknown]
  - Weight decreased [Unknown]
  - Palpitations [Unknown]
  - Blood pressure increased [Unknown]
